FAERS Safety Report 16434212 (Version 5)
Quarter: 2020Q1

REPORT INFORMATION
  Report Type: Report from Study
  Country: US (occurrence: US)
  Receive Date: 20190614
  Receipt Date: 20200204
  Transmission Date: 20200409
  Serious: Yes (Hospitalization)
  Sender: FDA-Public Use
  Company Number: US-PFIZER INC-2019248191

PATIENT
  Age: 8 Year
  Sex: Male
  Weight: 57 kg

DRUGS (18)
  1. VINCRISTINE SULFATE. [Suspect]
     Active Substance: VINCRISTINE SULFATE
     Dosage: 2 MG, SINGLE (ONCE)
     Route: 042
     Dates: start: 20190705
  2. METHOTREXATE SODIUM. [Suspect]
     Active Substance: METHOTREXATE SODIUM
     Dosage: 12 MG, SINGLE (ONCE)
     Route: 037
     Dates: start: 20190705
  3. CYCLOPHOSPHAMIDE. [Suspect]
     Active Substance: CYCLOPHOSPHAMIDE
     Dosage: 1500 MG, SINGLE (ONCE)
     Route: 042
     Dates: end: 20190523
  4. PEGASPARGASE [Suspect]
     Active Substance: PEGASPARGASE
     Indication: ACUTE LYMPHOCYTIC LEUKAEMIA
     Dosage: 3750 IU, IU/M2, ONCE
     Route: 042
     Dates: start: 20181204
  5. CYTARABINE. [Suspect]
     Active Substance: CYTARABINE
     Indication: ACUTE LYMPHOCYTIC LEUKAEMIA
     Dosage: 110 MG, MILLIGRAM/SQ. METER, ONCE
     Route: 042
     Dates: start: 20181120, end: 20190602
  6. CYCLOPHOSPHAMIDE. [Suspect]
     Active Substance: CYCLOPHOSPHAMIDE
     Indication: ACUTE LYMPHOCYTIC LEUKAEMIA
     Dosage: 1400 MG, SINGLE (ONCE)
     Route: 042
     Dates: start: 20181120
  7. DEXAMETHASONE. [Suspect]
     Active Substance: DEXAMETHASONE
     Indication: ACUTE LYMPHOCYTIC LEUKAEMIA
     Dosage: 8 MG, TABLET, 2X/DAY
     Route: 048
     Dates: start: 20190425, end: 20190509
  8. VINCRISTINE SULFATE. [Suspect]
     Active Substance: VINCRISTINE SULFATE
     Indication: ACUTE LYMPHOCYTIC LEUKAEMIA
     Dosage: 2 MG, SINGLE (ONCE)
     Route: 042
     Dates: start: 20181204, end: 20190620
  9. INCB018424 [Suspect]
     Active Substance: RUXOLITINIB
     Indication: ACUTE LYMPHOCYTIC LEUKAEMIA
     Dosage: 70 MG, TABLET, 2X/DAY
     Route: 048
     Dates: start: 20181120
  10. INCB018424 [Suspect]
     Active Substance: RUXOLITINIB
     Dosage: 75 MG, TABLET, 2X/DAY
     Route: 048
     Dates: end: 20190620
  11. PEGASPARGASE [Suspect]
     Active Substance: PEGASPARGASE
     Dosage: 3600 IU, IU/M2, ONCE
     Route: 042
     Dates: end: 20190620
  12. DOXORUBICIN HCL [Suspect]
     Active Substance: DOXORUBICIN HYDROCHLORIDE
     Indication: ACUTE LYMPHOCYTIC LEUKAEMIA
     Dosage: 38 MG, SINGLE (ONCE)
     Route: 042
     Dates: start: 20190425, end: 20190509
  13. INCB018424 [Suspect]
     Active Substance: RUXOLITINIB
     Dosage: 75 MG, TABLET, 2X/DAY
     Route: 048
     Dates: start: 20190705
  14. MERCAPTOPURINE. [Suspect]
     Active Substance: MERCAPTOPURINE
     Indication: ACUTE LYMPHOCYTIC LEUKAEMIA
     Dosage: 250 MG, TABLET, WEEKLY
     Route: 048
     Dates: start: 20181120, end: 20190620
  15. PEGASPARGASE [Suspect]
     Active Substance: PEGASPARGASE
     Dosage: 3600 IU, IU/M2, ONCE
     Route: 042
     Dates: start: 20190705
  16. METHOTREXATE SODIUM. [Suspect]
     Active Substance: METHOTREXATE SODIUM
     Indication: ACUTE LYMPHOCYTIC LEUKAEMIA
     Dosage: 12 MG, SINGLE (ONCE)
     Route: 037
     Dates: start: 20181120, end: 20190620
  17. MERCAPTOPURINE. [Suspect]
     Active Substance: MERCAPTOPURINE
     Dosage: 250 MG, TABLET, WEEKLY
     Route: 048
     Dates: start: 20190705
  18. THIOGUANINE [Suspect]
     Active Substance: THIOGUANINE
     Indication: ACUTE LYMPHOCYTIC LEUKAEMIA
     Dosage: 620 MG, TABLET, WEEKLY
     Route: 048
     Dates: start: 20190523, end: 20190604

REACTIONS (3)
  - Neutrophil count decreased [Recovered/Resolved]
  - Febrile neutropenia [Recovered/Resolved]
  - Anorectal cellulitis [Recovered/Resolved]

NARRATIVE: CASE EVENT DATE: 20190517
